FAERS Safety Report 23705744 (Version 1)
Quarter: 2024Q2

REPORT INFORMATION
  Report Type: Report from Study
  Country: NL (occurrence: NL)
  Receive Date: 20240404
  Receipt Date: 20240404
  Transmission Date: 20240716
  Serious: Yes (Other)
  Sender: FDA-Public Use
  Company Number: NL-AMGEN-NLDSL2024065146

PATIENT
  Age: 85 Year
  Sex: Female

DRUGS (1)
  1. PROLIA [Suspect]
     Active Substance: DENOSUMAB
     Indication: Osteoporosis
     Dosage: 60 MILLIGRAM/MILLILITER, Q6MO
     Route: 058
     Dates: start: 20231024

REACTIONS (3)
  - Spinal compression fracture [Unknown]
  - Deafness [Unknown]
  - Dizziness [Unknown]
